APPROVED DRUG PRODUCT: MYCAPSSA
Active Ingredient: OCTREOTIDE ACETATE
Strength: EQ 20MG BASE
Dosage Form/Route: CAPSULE, DELAYED RELEASE;ORAL
Application: N208232 | Product #001
Applicant: CHIESI FARMACEUTICI SPA
Approved: Jun 26, 2020 | RLD: Yes | RS: Yes | Type: RX

PATENTS:
Patent 11338011 | Expires: Feb 3, 2036
Patent 12251418 | Expires: Feb 3, 2036
Patent 12246054 | Expires: Feb 3, 2036
Patent 11141457 | Expires: Dec 28, 2040
Patent 10695397 | Expires: Feb 3, 2036
Patent 8535695 | Expires: Sep 17, 2029
Patent 10238709 | Expires: Feb 3, 2036
Patent 11510963 | Expires: Feb 3, 2036
Patent 11052126 | Expires: Feb 3, 2036
Patent 11857595 | Expires: Feb 3, 2036
Patent 11890316 | Expires: Dec 28, 2040
Patent 11986529 | Expires: Sep 17, 2029
Patent 11969471 | Expires: Sep 17, 2029
Patent 8329198 | Expires: Sep 17, 2029
Patent 9265812 | Expires: Sep 17, 2029
Patent 9566246 | Expires: Sep 17, 2029

EXCLUSIVITY:
Code: ODE-474 | Date: Jun 26, 2027